FAERS Safety Report 9529403 (Version 3)
Quarter: 2013Q4

REPORT INFORMATION
  Report Type: Spontaneous
  Country: AT (occurrence: AT)
  Receive Date: 20130917
  Receipt Date: 20131010
  Transmission Date: 20140711
  Serious: Yes (Hospitalization, Other)
  Sender: FDA-Public Use
  Company Number: PHHY2013AT099609

PATIENT
  Sex: Female

DRUGS (14)
  1. GLIVEC [Suspect]
     Indication: CHRONIC MYELOID LEUKAEMIA
     Dosage: 400 MG, ONCE A DAY
     Route: 048
     Dates: start: 20130721, end: 20130827
  2. TASIGNA [Suspect]
     Indication: CHRONIC MYELOID LEUKAEMIA
  3. LITALIR [Suspect]
     Indication: CHRONIC MYELOID LEUKAEMIA
     Dosage: 2000-1000 MG PER DAY
     Route: 048
     Dates: start: 20130729, end: 20130813
  4. UROSIN [Concomitant]
     Dosage: 600 MG, QD
     Route: 048
     Dates: start: 20130729, end: 20130903
  5. TRENTAL [Concomitant]
     Indication: DEAFNESS
     Dosage: 300 MG, UNK
     Route: 042
     Dates: start: 20130729, end: 20130830
  6. LOVENOX [Concomitant]
     Indication: ANTICOAGULANT THERAPY
     Dosage: 160 MG, UNK
     Route: 042
     Dates: start: 20130731, end: 20130814
  7. LOVENOX [Concomitant]
     Dosage: 120 MG, UNK
     Route: 042
     Dates: start: 20130815, end: 20130827
  8. LOVENOX [Concomitant]
     Dosage: 40 MG
     Route: 042
     Dates: start: 20130531
  9. MYCOSTATIN [Concomitant]
     Indication: PROPHYLAXIS
     Dosage: 1500000 IU, UNK
     Route: 048
     Dates: start: 20130808, end: 20130829
  10. TAVANIC [Concomitant]
     Indication: PROPHYLAXIS
     Dosage: 500 MG, UNK
     Route: 048
     Dates: start: 20130808, end: 20130902
  11. LASIX [Concomitant]
     Indication: ASCITES
     Dosage: 40 MG, UNK
     Route: 042
     Dates: start: 20130814, end: 20130819
  12. LASILACTON [Concomitant]
     Indication: ASCITES
     Dosage: 40 MG/100  MG
     Route: 048
     Dates: start: 20130820, end: 20130829
  13. PANTOLOC//PANTOPRAZOLE SODIUM SESQUIHYDRATE [Concomitant]
     Indication: GASTRIC DISORDER
     Dosage: 20 MG, UNK
     Route: 048
     Dates: start: 20130729, end: 20130822
  14. PANTOLOC//PANTOPRAZOLE SODIUM SESQUIHYDRATE [Concomitant]
     Dosage: 40 MG, UNK
     Dates: start: 20130912

REACTIONS (7)
  - Rhabdomyolysis [Recovering/Resolving]
  - Gait disturbance [Unknown]
  - Pain in extremity [Unknown]
  - Myalgia [Unknown]
  - Muscle swelling [Unknown]
  - Muscular weakness [Unknown]
  - Pleural disorder [Unknown]
